FAERS Safety Report 15397907 (Version 4)
Quarter: 2018Q4

REPORT INFORMATION
  Report Type: Spontaneous
  Country: US (occurrence: US)
  Receive Date: 20180918
  Receipt Date: 20181001
  Transmission Date: 20190204
  Serious: No
  Sender: FDA-Public Use
  Company Number: US-PFIZER INC-2018374239

PATIENT
  Age: 67 Year
  Sex: Male

DRUGS (3)
  1. CIPRO [CIPROFLOXACIN] [Concomitant]
     Dosage: UNK
  2. XELJANZ XR [Suspect]
     Active Substance: TOFACITINIB CITRATE
     Dosage: 11 MG, UNK
  3. ENBREL [Suspect]
     Active Substance: ETANERCEPT
     Dosage: UNK

REACTIONS (4)
  - Herpes zoster [Unknown]
  - Pyrexia [Unknown]
  - Urinary tract infection [Unknown]
  - Dysuria [Unknown]
